FAERS Safety Report 6066136-7 (Version None)
Quarter: 2009Q1

REPORT INFORMATION
  Report Type: 
  Country: None (occurrence: None)
  Receive Date: 20090130
  Receipt Date: 20090121
  Transmission Date: 20090719
  Serious: Yes (Other)
  Sender: FDA-Public Use
  Company Number: A-CH2009-23546

PATIENT
  Sex: Male

DRUGS (3)
  1. TRACLEER [Suspect]
     Indication: PULMONARY HYPERTENSION
     Dosage: 125 MG, BID, ORA,; 62.5 MG, BID, ORAL
     Route: 048
     Dates: start: 20090101
  2. LASIX [Concomitant]
  3. THEOPHYLLINE [Concomitant]

REACTIONS (2)
  - EXTRASYSTOLES [None]
  - OFF LABEL USE [None]
